FAERS Safety Report 23267647 (Version 2)
Quarter: 2024Q1

REPORT INFORMATION
  Report Type: Spontaneous
  Country: US (occurrence: None)
  Receive Date: 20231206
  Receipt Date: 20240104
  Transmission Date: 20240410
  Serious: Yes (Hospitalization)
  Sender: FDA-Public Use
  Company Number: 2023A270378

PATIENT

DRUGS (1)
  1. BUDESONIDE\FORMOTEROL [Suspect]
     Active Substance: BUDESONIDE\FORMOTEROL
     Dosage: UNK,UNK,EVERY 12 HOURS
     Route: 055
     Dates: start: 20231101

REACTIONS (4)
  - Respiratory syncytial virus infection [Unknown]
  - Device delivery system issue [Unknown]
  - Device use issue [Unknown]
  - Drug dose omission by device [Unknown]
